FAERS Safety Report 20569441 (Version 1)
Quarter: 2022Q1

REPORT INFORMATION
  Report Type: Spontaneous
  Country: US (occurrence: US)
  Receive Date: 20220309
  Receipt Date: 20220309
  Transmission Date: 20220424
  Serious: No
  Sender: FDA-Public Use
  Company Number: US-AMGEN-USASP2022038041

PATIENT
  Age: 17 Year
  Sex: Female

DRUGS (3)
  1. RITUXIMAB [Suspect]
     Active Substance: RITUXIMAB
     Indication: Neuromyelitis optica spectrum disorder
     Dosage: UNK UNK, QWK
     Route: 065
  2. CEFTRIAXONE [Concomitant]
     Active Substance: CEFTRIAXONE
     Indication: Neuromyelitis optica spectrum disorder
  3. VANCOMYCIN [Concomitant]
     Active Substance: VANCOMYCIN
     Indication: Neuromyelitis optica spectrum disorder

REACTIONS (3)
  - Arachnoid web [Unknown]
  - Drug ineffective for unapproved indication [Unknown]
  - Off label use [Unknown]
